FAERS Safety Report 18839682 (Version 1)
Quarter: 2021Q1

REPORT INFORMATION
  Report Type: Spontaneous
  Country: US (occurrence: US)
  Receive Date: 20210203
  Receipt Date: 20210203
  Transmission Date: 20210419
  Serious: Yes (Other)
  Sender: FDA-Public Use
  Company Number: US-SA-2021SA027742

PATIENT
  Sex: Female

DRUGS (3)
  1. ENOXAPARIN SODIUM ? WINTHROP [Suspect]
     Active Substance: ENOXAPARIN SODIUM
     Dosage: 40 MG, QD
  2. ENOXAPARIN SODIUM ? WINTHROP [Suspect]
     Active Substance: ENOXAPARIN SODIUM
     Dosage: 40 MG, Q12H, AT HOME
  3. ENOXAPARIN SODIUM ? WINTHROP [Suspect]
     Active Substance: ENOXAPARIN SODIUM
     Indication: ROAD TRAFFIC ACCIDENT
     Dosage: 90 MG, BID, IN THE HOSPITAL

REACTIONS (11)
  - Red man syndrome [Unknown]
  - Arthralgia [Unknown]
  - Musculoskeletal discomfort [Unknown]
  - Pain [Unknown]
  - Thrombosis [Unknown]
  - Peripheral swelling [Unknown]
  - Erythema [Unknown]
  - Product selection error [Unknown]
  - Feeling hot [Unknown]
  - Limb discomfort [Unknown]
  - Wrong product administered [Unknown]
